FAERS Safety Report 4591135-1 (Version None)
Quarter: 2005Q1

REPORT INFORMATION
  Report Type: 
  Country: None (occurrence: None)
  Receive Date: 20050222
  Receipt Date: 20050222
  Transmission Date: 20050727
  Serious: Yes (Other)
  Sender: FDA-Public Use
  Company Number: None

PATIENT
  Sex: Female
  Weight: 74 kg

DRUGS (1)
  1. INTERFERON ALPHA-2B [Suspect]
     Dosage: 9.0 MU SC 3X /WEEK . CYCLE = 4 WEEKS
     Route: 058
     Dates: start: 20041221

REACTIONS (5)
  - DEHYDRATION [None]
  - DISEASE PROGRESSION [None]
  - FATIGUE [None]
  - NAUSEA [None]
  - VOMITING [None]
